FAERS Safety Report 6517668-6 (Version None)
Quarter: 2009Q4

REPORT INFORMATION
  Report Type: 
  Country: None (occurrence: None)
  Receive Date: 20091224
  Receipt Date: 20091214
  Transmission Date: 20100525
  Serious: Yes (Other)
  Sender: FDA-Public Use
  Company Number: PHHY2009IT55993

PATIENT
  Age: 54 Year
  Sex: Female

DRUGS (4)
  1. ZOLEDRONIC ACID [Suspect]
     Dosage: 4 MG EVERY 28 DAYS FOR 16 CYCLES
     Route: 042
  2. PACLITAXEL [Concomitant]
     Dosage: WEEKLY
  3. TAMOXIFEN CITRATE [Concomitant]
  4. ANASTROZOLE [Concomitant]

REACTIONS (11)
  - BONE EROSION [None]
  - BONE LESION [None]
  - DISEASE PROGRESSION [None]
  - FISTULA [None]
  - JAW OPERATION [None]
  - METASTASES TO LUNG [None]
  - OSTEOLYSIS [None]
  - OSTEONECROSIS [None]
  - PAIN IN EXTREMITY [None]
  - PAIN IN JAW [None]
  - TOOTH EXTRACTION [None]
